FAERS Safety Report 20622281 (Version 1)
Quarter: 2022Q1

REPORT INFORMATION
  Report Type: Spontaneous
  Country: US (occurrence: US)
  Receive Date: 20220322
  Receipt Date: 20220322
  Transmission Date: 20220423
  Serious: No
  Sender: FDA-Public Use
  Company Number: US-NOVOPROD-897210

PATIENT
  Age: 42 Year
  Sex: Female

DRUGS (1)
  1. WEGOVY [Suspect]
     Active Substance: SEMAGLUTIDE
     Indication: Weight control
     Dosage: 1 MG
     Route: 058
     Dates: start: 20211026, end: 202201

REACTIONS (8)
  - Nausea [Recovering/Resolving]
  - Dyspepsia [Recovering/Resolving]
  - Constipation [Recovered/Resolved]
  - Product label confusion [Unknown]
  - Drug titration error [Unknown]
  - Device malfunction [Recovered/Resolved]
  - Device leakage [Not Recovered/Not Resolved]
  - Product label confusion [Recovered/Resolved]

NARRATIVE: CASE EVENT DATE: 20211001
